FAERS Safety Report 10080689 (Version 2)
Quarter: 2014Q3

REPORT INFORMATION
  Report Type: Spontaneous
  Country: IT (occurrence: None)
  Receive Date: 20140414
  Receipt Date: 20140707
  Transmission Date: 20150326
  Serious: Yes (Hospitalization)
  Sender: FDA-Public Use
  Company Number: AUR-APL-2014-04401

PATIENT
  Age: 74 Year
  Sex: Male

DRUGS (1)
  1. AMLODIPINE [Suspect]
     Active Substance: AMLODIPINE BESYLATE
     Indication: HYPERTENSION
     Dosage: (10 MG, 1 D)
     Route: 048
     Dates: start: 20090101, end: 20140226

REACTIONS (8)
  - Abdominal pain upper [None]
  - Asthenia [None]
  - Pleural effusion [None]
  - Vomiting [None]
  - Constipation [None]
  - Hyperpyrexia [None]
  - Nausea [None]
  - Abdominal pain [None]

NARRATIVE: CASE EVENT DATE: 20140210
